FAERS Safety Report 4970924-5 (Version None)
Quarter: 2006Q2

REPORT INFORMATION
  Report Type: 
  Country: None (occurrence: None)
  Receive Date: 20060411
  Receipt Date: 20060411
  Transmission Date: 20061013
  Serious: Yes (Hospitalization)
  Sender: FDA-Public Use
  Company Number: None

PATIENT
  Age: 77 Year
  Sex: Male
  Weight: 89.3586 kg

DRUGS (2)
  1. OXALIPLATIN    85 MG/M2 [Suspect]
     Indication: GASTROOESOPHAGEAL CANCER
     Dosage: 170 MG  QD  INTRA-ARTERIAL  (TWO TREATMENTS: DAYS 1 + 8)
     Route: 013
     Dates: start: 20060223, end: 20060302
  2. TAXOTERE [Suspect]
     Indication: GASTROOESOPHAGEAL CANCER
     Dosage: 50 MG  QD   INTRA-ARTERIAL  (TWO TREATMENTS: DAYS 1 + 8)
     Route: 013
     Dates: start: 20060223, end: 20060302

REACTIONS (7)
  - DIARRHOEA [None]
  - HEART RATE INCREASED [None]
  - LEUKOPENIA [None]
  - MUCOSAL INFLAMMATION [None]
  - NAUSEA [None]
  - RESPIRATORY RATE INCREASED [None]
  - VOMITING [None]
